FAERS Safety Report 6744216-8 (Version None)
Quarter: 2010Q2

REPORT INFORMATION
  Report Type: 
  Country: None (occurrence: None)
  Receive Date: 20100525
  Receipt Date: 20100512
  Transmission Date: 20101027
  Serious: Yes (Other)
  Sender: FDA-Public Use
  Company Number: 1000013922

PATIENT
  Age: 52 Year
  Sex: Male

DRUGS (2)
  1. ESCITALOPRAM [Suspect]
     Dosage: 5 MG (5 MG, 1 IN 1 B) ,ORAL
     Route: 048
     Dates: start: 20100228
  2. LORASIFAR [Concomitant]

REACTIONS (3)
  - HEART RATE IRREGULAR [None]
  - NAUSEA [None]
  - RESTLESSNESS [None]
